FAERS Safety Report 17041732 (Version 2)
Quarter: 2019Q4

REPORT INFORMATION
  Report Type: Spontaneous
  Country: FR (occurrence: FR)
  Receive Date: 20191118
  Receipt Date: 20191128
  Transmission Date: 20200122
  Serious: Yes (Death, Hospitalization, Other)
  Sender: FDA-Public Use
  Company Number: FR-TEVA-2019-FR-1138444

PATIENT
  Age: 74 Year
  Sex: Female

DRUGS (6)
  1. CELECOXIB. [Suspect]
     Active Substance: CELECOXIB
     Indication: BACK PAIN
     Dosage: ONLY ONE DOSE
     Route: 065
     Dates: start: 20170406, end: 20170406
  2. URSODESOXYCHOLIC ACID [Suspect]
     Active Substance: URSODIOL
     Indication: JAUNDICE
  3. URSODESOXYCHOLIC ACID [Suspect]
     Active Substance: URSODIOL
     Indication: CHOLESTASIS
  4. HYDROXYZINE [Suspect]
     Active Substance: HYDROXYZINE HYDROCHLORIDE
     Indication: PRURITUS
     Route: 065
  5. URSODESOXYCHOLIC ACID [Suspect]
     Active Substance: URSODIOL
     Indication: PRURITUS
     Dosage: 10 MG/KG DAILY; ON DAY-7 OF HOSPITALISATION
     Route: 065
  6. RIFAMPICIN [Suspect]
     Active Substance: RIFAMPIN
     Indication: PRURITUS
     Route: 065

REACTIONS (6)
  - Drug ineffective [Unknown]
  - Malnutrition [Unknown]
  - Hepatitis cholestatic [Fatal]
  - Vanishing bile duct syndrome [Fatal]
  - Multiple organ dysfunction syndrome [Fatal]
  - Decreased appetite [Unknown]
